FAERS Safety Report 7037954-3 (Version None)
Quarter: 2010Q4

REPORT INFORMATION
  Report Type: 
  Country: None (occurrence: None)
  Receive Date: 20101011
  Receipt Date: 20101004
  Transmission Date: 20110411
  Serious: Yes (Hospitalization)
  Sender: FDA-Public Use
  Company Number: FR-AMGEN-QUU442622

PATIENT
  Sex: Female

DRUGS (5)
  1. ARANESP [Suspect]
     Indication: ANAEMIA OF MALIGNANT DISEASE
     Route: 042
     Dates: start: 20100728
  2. DURAGESIC-100 [Concomitant]
  3. SPIRIVA [Concomitant]
     Route: 048
  4. ZOLEDRONIC ACID [Concomitant]
     Route: 042
     Dates: start: 20100722, end: 20100722
  5. DEXTROPROPOXYPHENE [Concomitant]
     Route: 048

REACTIONS (1)
  - ISCHAEMIA [None]
